FAERS Safety Report 16117967 (Version 1)
Quarter: 2019Q1

REPORT INFORMATION
  Report Type: Spontaneous
  Country: US (occurrence: US)
  Receive Date: 20190222
  Receipt Date: 20190222
  Transmission Date: 20190418
  Serious: No
  Sender: FDA-Public Use
  Company Number: None

PATIENT
  Age: 61 Year
  Sex: Male

DRUGS (1)
  1. IMATAINIB 400MG TAB (X30) [Suspect]
     Active Substance: IMATINIB MESYLATE
     Indication: NEOPLASM
     Route: 048
     Dates: start: 201802

REACTIONS (4)
  - Memory impairment [None]
  - Malaise [None]
  - Therapy cessation [None]
  - Nasopharyngitis [None]

NARRATIVE: CASE EVENT DATE: 20190222
